FAERS Safety Report 19498118 (Version 4)
Quarter: 2021Q3

REPORT INFORMATION
  Report Type: Spontaneous
  Country: US (occurrence: US)
  Receive Date: 20210706
  Receipt Date: 20210910
  Transmission Date: 20211014
  Serious: Yes (Hospitalization, Other)
  Sender: FDA-Public Use
  Company Number: US-PFIZER INC-2021799701

PATIENT
  Age: 52 Year
  Sex: Female
  Weight: 123.36 kg

DRUGS (2)
  1. SOMAVERT [Suspect]
     Active Substance: PEGVISOMANT
     Indication: ACROMEGALY
     Dosage: 20 MG, 2X/WEEK
     Dates: start: 2007, end: 20200227
  2. SOMATULIN [Concomitant]
     Active Substance: LANREOTIDE ACETATE
     Dosage: UNK
     Dates: start: 2007, end: 2020

REACTIONS (5)
  - Pneumonia [Recovered/Resolved]
  - Mental disorder [Recovered/Resolved]
  - Dyspnoea [Unknown]
  - Oxygen saturation decreased [Unknown]
  - Off label use [Unknown]

NARRATIVE: CASE EVENT DATE: 2007
